FAERS Safety Report 7827295-6 (Version None)
Quarter: 2011Q4

REPORT INFORMATION
  Report Type: 
  Country: None (occurrence: None)
  Receive Date: 20111020
  Receipt Date: 20111017
  Transmission Date: 20120403
  Serious: Yes (Other)
  Sender: FDA-Public Use
  Company Number: JP-PFIZER INC-2011249101

PATIENT
  Sex: Female

DRUGS (2)
  1. LYRICA [Suspect]
     Indication: POST HERPETIC NEURALGIA
     Dosage: 150 MG DAILY
     Route: 048
     Dates: start: 20110606, end: 20111002
  2. ACICLOVIR [Concomitant]
     Indication: POST HERPETIC NEURALGIA
     Dosage: 500 MG DAILY
     Route: 042
     Dates: start: 20111001, end: 20111002

REACTIONS (2)
  - RENAL DISORDER [None]
  - ALTERED STATE OF CONSCIOUSNESS [None]
